FAERS Safety Report 16388161 (Version 1)
Quarter: 2019Q2

REPORT INFORMATION
  Report Type: Spontaneous
  Country: HU (occurrence: HU)
  Receive Date: 20190604
  Receipt Date: 20190604
  Transmission Date: 20190711
  Serious: Yes (Other)
  Sender: FDA-Public Use
  Company Number: PHHY2019HU122635

PATIENT
  Age: 70 Year
  Sex: Female

DRUGS (3)
  1. DEXAMETHASONE. [Suspect]
     Active Substance: DEXAMETHASONE
     Indication: ACUTE PROMYELOCYTIC LEUKAEMIA
     Dosage: UNK
     Route: 065
  2. ALL-TRANS RETINOIC ACID [Suspect]
     Active Substance: TRETINOIN
     Indication: ACUTE PROMYELOCYTIC LEUKAEMIA
     Dosage: UNK
     Route: 065
  3. IDARUBICIN [Suspect]
     Active Substance: IDARUBICIN
     Indication: ACUTE PROMYELOCYTIC LEUKAEMIA
     Dosage: UNK
     Route: 065

REACTIONS (1)
  - Neutropenia [Unknown]
